FAERS Safety Report 8489359-6 (Version None)
Quarter: 2012Q3

REPORT INFORMATION
  Report Type: 
  Country: None (occurrence: None)
  Receive Date: 20120705
  Receipt Date: 20120627
  Transmission Date: 20120928
  Serious: Yes (Other)
  Sender: FDA-Public Use
  Company Number: BE-UCBSA-060692

PATIENT
  Age: 25 Year
  Sex: Female

DRUGS (3)
  1. VIMPAT [Suspect]
     Indication: EPILEPSY
     Route: 048
  2. TOPAMAX [Concomitant]
     Dosage: DOSE REDUCED
  3. TOPAMAX [Concomitant]

REACTIONS (1)
  - CONVULSION [None]
